FAERS Safety Report 13947304 (Version 2)
Quarter: 2017Q3

REPORT INFORMATION
  Report Type: Spontaneous
  Country: FR (occurrence: FR)
  Receive Date: 20170907
  Receipt Date: 20170911
  Transmission Date: 20171128
  Serious: Yes (Other)
  Sender: FDA-Public Use
  Company Number: FR-ROCHE-1989461

PATIENT
  Age: 71 Year
  Sex: Male

DRUGS (1)
  1. MABTHERA [Suspect]
     Active Substance: RITUXIMAB
     Indication: OCULAR MYASTHENIA
     Dosage: CYCLE 1
     Route: 041
     Dates: start: 20170706

REACTIONS (4)
  - Dyspnoea [Unknown]
  - Erythema [Unknown]
  - Off label use [Unknown]
  - Larynx irritation [Unknown]

NARRATIVE: CASE EVENT DATE: 20170706
